FAERS Safety Report 16739248 (Version 1)
Quarter: 2019Q3

REPORT INFORMATION
  Report Type: Spontaneous
  Country: US (occurrence: US)
  Receive Date: 20190709
  Receipt Date: 20190709
  Transmission Date: 20191005
  Serious: Yes (Hospitalization)
  Sender: FDA-Public Use
  Company Number: None

PATIENT
  Age: 35 Year
  Sex: Female

DRUGS (4)
  1. OSELTAMVIR [Concomitant]
     Active Substance: OSELTAMIVIR
  2. BENLYSTA [Suspect]
     Active Substance: BELIMUMAB
     Indication: SYSTEMIC LUPUS ERYTHEMATOSUS
     Route: 058
     Dates: start: 20180322
  3. CEFDINIR. [Concomitant]
     Active Substance: CEFDINIR
  4. NAPROXEN. [Suspect]
     Active Substance: NAPROXEN

REACTIONS (2)
  - Condition aggravated [None]
  - Heat exhaustion [None]

NARRATIVE: CASE EVENT DATE: 20190707
